FAERS Safety Report 4735870-0 (Version None)
Quarter: 2005Q3

REPORT INFORMATION
  Report Type: 
  Country: None (occurrence: None)
  Receive Date: 20050805
  Receipt Date: 20050725
  Transmission Date: 20060218
  Serious: Yes (Hospitalization)
  Sender: FDA-Public Use
  Company Number: US-JNJFOC-20050604779

PATIENT
  Sex: Male
  Weight: 91.63 kg

DRUGS (18)
  1. DOXIL [Suspect]
     Indication: MULTIPLE MYELOMA
     Dosage: X3 CYCLES
     Route: 042
  2. VINCRISTINE [Concomitant]
     Indication: MULTIPLE MYELOMA
  3. DECADRON [Concomitant]
     Indication: MULTIPLE MYELOMA
  4. AMBIEN [Concomitant]
  5. ATIVAN [Concomitant]
  6. ULTRAM [Concomitant]
  7. CALCIUM GLUCONATE [Concomitant]
  8. MULTI-VITAMIN [Concomitant]
  9. MULTI-VITAMIN [Concomitant]
  10. MULTI-VITAMIN [Concomitant]
  11. MULTI-VITAMIN [Concomitant]
  12. MULTI-VITAMIN [Concomitant]
  13. MULTI-VITAMIN [Concomitant]
  14. MULTI-VITAMIN [Concomitant]
  15. MULTI-VITAMIN [Concomitant]
  16. DARVOCET-N 100 [Concomitant]
  17. DARVOCET-N 100 [Concomitant]
  18. ZOMETA [Concomitant]

REACTIONS (11)
  - ALVEOLITIS ALLERGIC [None]
  - ANAEMIA [None]
  - ANXIETY [None]
  - DEPRESSION [None]
  - DERMATITIS [None]
  - FUNGAL SKIN INFECTION [None]
  - LEUKOPENIA [None]
  - PALMAR-PLANTAR ERYTHRODYSAESTHESIA SYNDROME [None]
  - PNEUMONIA [None]
  - PNEUMOTHORAX [None]
  - TRACHEOBRONCHITIS [None]
